FAERS Safety Report 23766501 (Version 8)
Quarter: 2024Q4

REPORT INFORMATION
  Report Type: Report from Study
  Country: CA (occurrence: CA)
  Receive Date: 20240422
  Receipt Date: 20241211
  Transmission Date: 20250115
  Serious: Yes (Hospitalization, Disabling, Other)
  Sender: TAKEDA
  Company Number: CA-TAKEDA-2023TUS098843

PATIENT
  Age: 25 Year
  Sex: Female

DRUGS (8)
  1. VEDOLIZUMAB [Suspect]
     Active Substance: VEDOLIZUMAB
     Indication: Colitis ulcerative
     Dosage: 300 MILLIGRAM
  2. VEDOLIZUMAB [Suspect]
     Active Substance: VEDOLIZUMAB
     Dosage: 300 MILLIGRAM
  3. VEDOLIZUMAB [Suspect]
     Active Substance: VEDOLIZUMAB
     Dosage: 300 MILLIGRAM
  4. VEDOLIZUMAB [Suspect]
     Active Substance: VEDOLIZUMAB
     Dosage: 300 MILLIGRAM
  5. VEDOLIZUMAB [Suspect]
     Active Substance: VEDOLIZUMAB
     Dosage: 300 MILLIGRAM
  6. VEDOLIZUMAB [Suspect]
     Active Substance: VEDOLIZUMAB
     Dosage: 300 MILLIGRAM
  7. VEDOLIZUMAB [Suspect]
     Active Substance: VEDOLIZUMAB
     Dosage: 300 MILLIGRAM, Q4WEEKS
     Dates: start: 20240923, end: 20241114
  8. DICYCLOMINE [Concomitant]
     Active Substance: DICYCLOMINE HYDROCHLORIDE
     Dosage: 10 MILLIGRAM

REACTIONS (33)
  - Haematochezia [Not Recovered/Not Resolved]
  - Defaecation urgency [Not Recovered/Not Resolved]
  - Anal incontinence [Not Recovered/Not Resolved]
  - Abdominal pain [Unknown]
  - Clostridium difficile infection [Recovering/Resolving]
  - Cholelithiasis [Unknown]
  - Rectal haemorrhage [Unknown]
  - Frequent bowel movements [Not Recovered/Not Resolved]
  - Gastrointestinal inflammation [Not Recovered/Not Resolved]
  - Dehydration [Not Recovered/Not Resolved]
  - Asthenia [Not Recovered/Not Resolved]
  - Chest pain [Recovered/Resolved]
  - Dyspnoea [Recovered/Resolved]
  - Dizziness [Not Recovered/Not Resolved]
  - Hepatitis [Not Recovered/Not Resolved]
  - Decreased appetite [Not Recovered/Not Resolved]
  - Back pain [Unknown]
  - Gastrointestinal disorder [Recovered/Resolved]
  - COVID-19 [Recovered/Resolved]
  - Weight decreased [Recovered/Resolved]
  - Diarrhoea [Unknown]
  - Off label use [Unknown]
  - Drug ineffective [Not Recovered/Not Resolved]
  - Anaemia [Unknown]
  - Loss of personal independence in daily activities [Unknown]
  - Anxiety [Unknown]
  - Irritable bowel syndrome [Unknown]
  - Quality of life decreased [Unknown]
  - Eczema [Unknown]
  - Arthralgia [Unknown]
  - Headache [Unknown]
  - Fatigue [Unknown]
  - Nausea [Unknown]

NARRATIVE: CASE EVENT DATE: 20240902
